FAERS Safety Report 26038319 (Version 1)
Quarter: 2025Q4

REPORT INFORMATION
  Report Type: Report from Study
  Country: US (occurrence: US)
  Receive Date: 20251113
  Receipt Date: 20251113
  Transmission Date: 20260117
  Serious: Yes (Other)
  Sender: ABBVIE
  Company Number: US-ABBVIE-6352420

PATIENT
  Age: 67 Year
  Sex: Male

DRUGS (3)
  1. SKYRIZI [Suspect]
     Active Substance: RISANKIZUMAB-RZAA
     Indication: Psoriasis
     Dosage: DOSAGE: 150 MG/ML WEEK 0?STRENGTH: 150MG/ML SOLUTION FOR INJECTION IN PRE-FILLED PEN
     Route: 058
     Dates: start: 20250415, end: 20250415
  2. SKYRIZI [Suspect]
     Active Substance: RISANKIZUMAB-RZAA
     Indication: Psoriatic arthropathy
     Dosage: DOSAGE: 150 MG/ML STRENGTH: 150MG/ML SOLUTION FOR INJECTION IN PRE-FILLED PEN
     Route: 058
     Dates: start: 20250513, end: 20250513
  3. SKYRIZI [Suspect]
     Active Substance: RISANKIZUMAB-RZAA
     Dosage: DOSAGE: 150 MG/ML FIRST ADMIN: 2025 ?STRENGTH: 150MG/ML SOLUTION FOR INJECTION IN PRE-FILLED PEN
     Route: 058

REACTIONS (5)
  - Hepatic neoplasm [Unknown]
  - Arthralgia [Not Recovered/Not Resolved]
  - Therapeutic product effect incomplete [Unknown]
  - Pain of skin [Unknown]
  - Therapeutic response shortened [Not Recovered/Not Resolved]

NARRATIVE: CASE EVENT DATE: 20250101
